FAERS Safety Report 9655543 (Version 1)
Quarter: 2013Q4

REPORT INFORMATION
  Report Type: Spontaneous
  Country: US (occurrence: US)
  Receive Date: 20131029
  Receipt Date: 20131029
  Transmission Date: 20140711
  Serious: No
  Sender: FDA-Public Use
  Company Number: US-ELI_LILLY_AND_COMPANY-US201310008153

PATIENT
  Age: 51 Year
  Sex: Male

DRUGS (2)
  1. CIALIS [Suspect]
     Indication: ERECTILE DYSFUNCTION
     Dosage: 5 MG, QD
     Route: 065
  2. CIALIS [Suspect]
     Dosage: 10 MG, SINGLE
     Route: 065

REACTIONS (4)
  - Vision blurred [Unknown]
  - Flushing [Unknown]
  - Headache [Unknown]
  - Extra dose administered [Unknown]
